FAERS Safety Report 4295442-1 (Version None)
Quarter: 2004Q1

REPORT INFORMATION
  Report Type: 
  Country: None (occurrence: None)
  Receive Date: 20040212
  Receipt Date: 20040127
  Transmission Date: 20041129
  Serious: Yes (Other)
  Sender: FDA-Public Use
  Company Number: 200313516

PATIENT
  Age: 5 Year
  Sex: Male
  Weight: 19 kg

DRUGS (1)
  1. BOTOX PURIFIED NEUROTOXIN COMPLEX [Suspect]
     Indication: CEREBRAL PALSY
     Dosage: 100 UNITS PRN; IM
     Route: 030
     Dates: start: 20030702

REACTIONS (4)
  - ANAL SPHINCTER ATONY [None]
  - ASTHENIA [None]
  - CONSTIPATION [None]
  - CONVULSION [None]
